FAERS Safety Report 8463688-4 (Version None)
Quarter: 2012Q2

REPORT INFORMATION
  Report Type: 
  Country: None (occurrence: None)
  Receive Date: 20120625
  Receipt Date: 20120619
  Transmission Date: 20120825
  Serious: Yes (Hospitalization, Other)
  Sender: FDA-Public Use
  Company Number: US-TEVA-344084USA

PATIENT
  Sex: Male

DRUGS (1)
  1. BUSPIRONE HCL [Suspect]
     Dates: start: 20120101

REACTIONS (4)
  - COORDINATION ABNORMAL [None]
  - DRUG WITHDRAWAL SYNDROME [None]
  - DRUG INEFFECTIVE [None]
  - FALL [None]
